FAERS Safety Report 25706968 (Version 2)
Quarter: 2025Q3

REPORT INFORMATION
  Report Type: Spontaneous
  Country: US (occurrence: US)
  Receive Date: 20250820
  Receipt Date: 20250911
  Transmission Date: 20251020
  Serious: No
  Sender: SANOFI AVENTIS
  Company Number: US-SA-2025SA247676

PATIENT
  Age: 61 Year
  Sex: Male

DRUGS (1)
  1. DUPIXENT [Suspect]
     Active Substance: DUPILUMAB
     Indication: Eosinophilic oesophagitis
     Dosage: 300 MG, QW
     Route: 058
     Dates: start: 20250813

REACTIONS (6)
  - Abdominal pain [Recovered/Resolved]
  - Chills [Recovered/Resolved]
  - Bowel movement irregularity [Unknown]
  - Faeces hard [Unknown]
  - Faeces soft [Unknown]
  - Injection site pain [Not Recovered/Not Resolved]

NARRATIVE: CASE EVENT DATE: 20250101
